FAERS Safety Report 7401068-0 (Version None)
Quarter: 2011Q2

REPORT INFORMATION
  Report Type: 
  Country: None (occurrence: None)
  Receive Date: 20110407
  Receipt Date: 20110331
  Transmission Date: 20111010
  Serious: Yes (Other)
  Sender: FDA-Public Use
  Company Number: GB-PFIZER INC-2011072603

PATIENT
  Sex: Male

DRUGS (1)
  1. PREGABALIN [Suspect]
     Indication: ANXIETY
     Dosage: 300 MG, 2X/DAY

REACTIONS (3)
  - PHOBIA [None]
  - CHOKING [None]
  - STRESS [None]
